FAERS Safety Report 8336185-4 (Version None)
Quarter: 2012Q2

REPORT INFORMATION
  Report Type: 
  Country: None (occurrence: None)
  Receive Date: 20120504
  Receipt Date: 20120427
  Transmission Date: 20120825
  Serious: Yes (Other)
  Sender: FDA-Public Use
  Company Number: US-PFIZER INC-2011197821

PATIENT
  Sex: Male

DRUGS (29)
  1. VALIUM [Concomitant]
     Indication: POST-TRAUMATIC STRESS DISORDER
  2. ATIVAN [Concomitant]
     Indication: POST-TRAUMATIC STRESS DISORDER
     Dosage: UNK
     Dates: start: 20040101, end: 20070101
  3. LORTAB [Concomitant]
     Indication: PAIN
     Dosage: UNK
     Dates: start: 20020101
  4. ACETYLSALICYLIC ACID [Concomitant]
     Indication: PAIN
     Dosage: UNK
     Dates: start: 20020101
  5. ACETYLSALICYLIC ACID [Concomitant]
     Indication: CORONARY ARTERY DISEASE
  6. FLEXERIL [Concomitant]
     Indication: PAIN
     Dosage: UNK
     Dates: start: 20040101
  7. ACETAMINOPHEN [Concomitant]
     Indication: PAIN
     Dosage: UNK
     Dates: start: 20050101, end: 20080101
  8. SOMA [Concomitant]
     Indication: PAIN
     Dosage: UNK
     Dates: start: 20060101, end: 20080101
  9. ATIVAN [Concomitant]
     Indication: ANXIETY
  10. ACETYLSALICYLIC ACID [Concomitant]
     Indication: CEREBROVASCULAR DISORDER
  11. CYMBALTA [Concomitant]
     Indication: POST-TRAUMATIC STRESS DISORDER
     Dosage: UNK
     Dates: start: 20040101, end: 20070101
  12. CHANTIX [Suspect]
     Indication: SMOKING CESSATION THERAPY
     Dosage: STARTER PACK , UNK
     Dates: start: 20070622, end: 20070803
  13. KLOR-CON [Concomitant]
     Indication: BLOOD POTASSIUM
     Dosage: UNK
     Dates: start: 20040101
  14. CATAPRES [Concomitant]
     Indication: HYPERTENSION
     Dosage: UNK
     Dates: start: 20040101
  15. PAXIL [Concomitant]
     Indication: POST-TRAUMATIC STRESS DISORDER
     Dosage: UNK
     Dates: start: 20020101, end: 20070101
  16. MIRALAX [Concomitant]
     Indication: CONSTIPATION
     Dosage: UNK
     Dates: start: 20050101, end: 20090101
  17. CYMBALTA [Concomitant]
     Indication: DEPRESSION
  18. LORCET-HD [Concomitant]
     Indication: PAIN
     Dosage: UNK
     Dates: start: 20020101
  19. CADUET [Concomitant]
     Indication: HYPERTENSION
     Dosage: UNK
     Dates: start: 20040101
  20. LOPERAMIDE [Concomitant]
     Indication: IRRITABLE BOWEL SYNDROME
     Dosage: UNK
     Dates: start: 20040101, end: 20080101
  21. NORCO [Concomitant]
     Indication: PAIN
     Dosage: UNK
     Dates: start: 20020101
  22. NORVASC [Concomitant]
     Indication: HYPERTENSION
     Dosage: UNK
     Dates: start: 20040101
  23. BENTYL [Concomitant]
     Indication: IRRITABLE BOWEL SYNDROME
     Dosage: UNK
     Dates: start: 20060101, end: 20080101
  24. VALIUM [Concomitant]
     Indication: ANXIETY
     Dosage: UNK
     Dates: start: 20020101
  25. PAXIL [Concomitant]
     Indication: DEPRESSION
  26. TOPROL-XL [Concomitant]
     Indication: HYPERTENSION
     Dosage: UNK
     Dates: start: 20040101
  27. LOPRESSOR [Concomitant]
     Indication: HYPERTENSION
     Dosage: UNK
     Dates: start: 20040101
  28. RISPERDAL [Concomitant]
     Indication: POST-TRAUMATIC STRESS DISORDER
     Dosage: UNK
     Dates: start: 20040101, end: 20070101
  29. RISPERDAL [Concomitant]
     Indication: DEPRESSION

REACTIONS (2)
  - ANXIETY [None]
  - DEPRESSION [None]
